FAERS Safety Report 5133031-7 (Version None)
Quarter: 2006Q4

REPORT INFORMATION
  Report Type: 
  Country: None (occurrence: None)
  Receive Date: 20061017
  Receipt Date: 20061002
  Transmission Date: 20070319
  Serious: Yes (Hospitalization)
  Sender: FDA-Public Use
  Company Number: TR200610000880

PATIENT
  Age: 65 Year
  Sex: Female
  Weight: 40 kg

DRUGS (3)
  1. FORTEO [Suspect]
     Indication: OSTEOPOROSIS
     Dosage: 20
     Dates: start: 20060612
  2. FORTEO [Suspect]
  3. RAMIPRIL [Concomitant]

REACTIONS (3)
  - BRADYCARDIA [None]
  - HYPOTENSION [None]
  - PSORIASIS [None]
